FAERS Safety Report 8483513-5 (Version None)
Quarter: 2012Q3

REPORT INFORMATION
  Report Type: 
  Country: None (occurrence: None)
  Receive Date: 20120702
  Receipt Date: 20120629
  Transmission Date: 20120928
  Serious: Yes (Other)
  Sender: FDA-Public Use
  Company Number: TW-MERCK-1206USA05326

PATIENT
  Age: 54 Year
  Sex: Male

DRUGS (1)
  1. PROSCAR [Suspect]
     Indication: ANDROGENETIC ALOPECIA
     Route: 048
     Dates: start: 20060101

REACTIONS (4)
  - OFF LABEL USE [None]
  - PROSTATE CANCER [None]
  - INTENTIONAL DRUG MISUSE [None]
  - WRONG TECHNIQUE IN DRUG USAGE PROCESS [None]
